FAERS Safety Report 5400219-7 (Version None)
Quarter: 2007Q3

REPORT INFORMATION
  Report Type: 
  Country: None (occurrence: None)
  Receive Date: 20070727
  Receipt Date: 20070727
  Transmission Date: 20080115
  Serious: No
  Sender: FDA-Public Use
  Company Number: None

PATIENT
  Age: 54 Year
  Sex: Female
  Weight: 70.3075 kg

DRUGS (1)
  1. ZOMIG [Suspect]
     Indication: MIGRAINE
     Dosage: 1 5-MG APPLICATOR PER MIGRAINE 7-8 TIMES A MONTH NASAL
     Route: 045
     Dates: start: 20040802, end: 20070723

REACTIONS (4)
  - BURNING SENSATION [None]
  - CONDITION AGGRAVATED [None]
  - PAIN IN EXTREMITY [None]
  - PARAESTHESIA [None]
